FAERS Safety Report 6816868-5 (Version None)
Quarter: 2010Q3

REPORT INFORMATION
  Report Type: 
  Country: None (occurrence: None)
  Receive Date: 20100706
  Receipt Date: 20100621
  Transmission Date: 20110219
  Serious: Yes (Hospitalization)
  Sender: FDA-Public Use
  Company Number: DE-MYLANLABS-2010S1008826

PATIENT
  Age: 30 Year
  Sex: Female
  Weight: 86 kg

DRUGS (7)
  1. VALPROATE SODIUM [Suspect]
     Indication: EPILEPSY
     Route: 048
     Dates: start: 19990101
  2. VALPROATE SODIUM [Suspect]
     Route: 048
     Dates: start: 19990101, end: 20080101
  3. VALPROATE SODIUM [Suspect]
     Indication: EPILEPSY
     Route: 048
     Dates: start: 20080101
  4. VALPROATE SODIUM [Suspect]
     Route: 048
     Dates: start: 20080101
  5. KEPPRA [Concomitant]
     Indication: EPILEPSY
     Route: 048
     Dates: start: 20080101
  6. VESICARE [Concomitant]
     Indication: INCONTINENCE
     Route: 048
  7. DULOXETINE [Concomitant]
     Indication: INCONTINENCE
     Route: 048

REACTIONS (1)
  - HIRSUTISM [None]
